FAERS Safety Report 7308788-7 (Version None)
Quarter: 2011Q1

REPORT INFORMATION
  Report Type: 
  Country: None (occurrence: None)
  Receive Date: 20110223
  Receipt Date: 20110214
  Transmission Date: 20110831
  Serious: Yes (Other)
  Sender: FDA-Public Use
  Company Number: PHHY2011US13130

PATIENT
  Age: 58 Year
  Sex: Female

DRUGS (4)
  1. XANAX [Concomitant]
     Dosage: UNK
  2. NAMENDA [Concomitant]
     Dosage: UNK
  3. NUVIGIL [Concomitant]
     Dosage: UNK
  4. GILENYA [Suspect]
     Dosage: 0.5 MG, QD
     Route: 048

REACTIONS (2)
  - FALL [None]
  - DIZZINESS [None]
